FAERS Safety Report 18501786 (Version 1)
Quarter: 2020Q4

REPORT INFORMATION
  Report Type: Spontaneous
  Country: US (occurrence: US)
  Receive Date: 20201113
  Receipt Date: 20201113
  Transmission Date: 20210114
  Serious: No
  Sender: FDA-Public Use
  Company Number: US-TEVA-2020-US-1847547

PATIENT
  Sex: Female

DRUGS (1)
  1. BUPRENORPHINE. [Suspect]
     Active Substance: BUPRENORPHINE
     Dosage: DOSE: 20 MCG/HOUR
     Route: 062

REACTIONS (3)
  - Drug ineffective [Unknown]
  - Wrong technique in device usage process [Unknown]
  - Product adhesion issue [Unknown]
